FAERS Safety Report 23151957 (Version 2)
Quarter: 2023Q4

REPORT INFORMATION
  Report Type: Spontaneous
  Country: US (occurrence: US)
  Receive Date: 20231107
  Receipt Date: 20231122
  Transmission Date: 20240109
  Serious: Yes (Other)
  Sender: FDA-Public Use
  Company Number: US-ABBVIE-5480026

PATIENT
  Age: 54 Year
  Sex: Male

DRUGS (1)
  1. RISANKIZUMAB [Suspect]
     Active Substance: RISANKIZUMAB
     Indication: Nail psoriasis
     Route: 065

REACTIONS (2)
  - Cutaneous T-cell lymphoma [Recovering/Resolving]
  - Off label use [Unknown]
